FAERS Safety Report 10231549 (Version 1)
Quarter: 2014Q2

REPORT INFORMATION
  Report Type: Spontaneous
  Country: US (occurrence: US)
  Receive Date: 20140611
  Receipt Date: 20140611
  Transmission Date: 20141212
  Serious: No
  Sender: FDA-Public Use
  Company Number: US-B.I. PHARMACEUTICALS,INC./RIDGEFIELD-2014-BI-24857BP

PATIENT
  Sex: Female
  Weight: 69 kg

DRUGS (4)
  1. SPIRIVA [Suspect]
     Indication: HISTOPLASMOSIS
     Dosage: 18 MCG
     Route: 055
     Dates: start: 201404
  2. FLECAINIDE [Concomitant]
     Dosage: 100 MG
     Route: 048
  3. PANTOPRAZOLE [Concomitant]
     Indication: GASTRIC DISORDER
     Dosage: 40 MG
     Route: 048
  4. METOPROLOL [Concomitant]
     Dosage: 100 MG
     Route: 048

REACTIONS (3)
  - Weight increased [Not Recovered/Not Resolved]
  - Increased appetite [Not Recovered/Not Resolved]
  - Off label use [Unknown]
